FAERS Safety Report 6496153-4 (Version None)
Quarter: 2009Q4

REPORT INFORMATION
  Report Type: 
  Country: None (occurrence: None)
  Receive Date: 20091214
  Receipt Date: 20091006
  Transmission Date: 20100525
  Serious: Yes (Hospitalization)
  Sender: FDA-Public Use
  Company Number: US-BRISTOL-MYERS SQUIBB COMPANY-14808976

PATIENT
  Age: 48 Year
  Sex: Female

DRUGS (4)
  1. ABILIFY [Suspect]
  2. CYMBALTA [Suspect]
     Indication: MAJOR DEPRESSION
     Route: 065
  3. PREMARIN [Concomitant]
     Route: 065
  4. MEDROGESTONE [Concomitant]

REACTIONS (1)
  - INTENTIONAL SELF-INJURY [None]
